FAERS Safety Report 7970067-2 (Version None)
Quarter: 2011Q4

REPORT INFORMATION
  Report Type: 
  Country: None (occurrence: None)
  Receive Date: 20111212
  Receipt Date: 20111130
  Transmission Date: 20120403
  Serious: Yes (Death, Hospitalization)
  Sender: FDA-Public Use
  Company Number: JP-JNJFOC-20100209303

PATIENT
  Sex: Female
  Weight: 49 kg

DRUGS (21)
  1. REMICADE [Suspect]
     Dosage: 13TH DOSE
     Route: 042
     Dates: start: 20100623
  2. PREDNISOLONE [Concomitant]
     Route: 048
     Dates: start: 20090910, end: 20091028
  3. REMICADE [Suspect]
     Route: 042
     Dates: start: 20080924
  4. PREDNISOLONE [Concomitant]
     Route: 048
     Dates: start: 20080218, end: 20080908
  5. REMICADE [Suspect]
     Route: 042
     Dates: start: 20091028
  6. REMICADE [Suspect]
     Route: 042
     Dates: start: 20100428
  7. REMICADE [Suspect]
     Route: 042
     Dates: start: 20090114
  8. REMICADE [Suspect]
     Route: 042
     Dates: start: 20081008
  9. REMICADE [Suspect]
     Route: 042
     Dates: start: 20090513
  10. PREDNISOLONE [Concomitant]
     Route: 048
  11. REMICADE [Suspect]
     Route: 042
     Dates: start: 20091216
  12. REMICADE [Suspect]
     Route: 042
     Dates: start: 20081112
  13. NEORAL [Suspect]
     Indication: BEHCET'S SYNDROME
     Route: 048
     Dates: start: 20080616, end: 20100101
  14. NEORAL [Suspect]
     Route: 048
     Dates: start: 20080218, end: 20080615
  15. PREDNISOLONE [Concomitant]
     Route: 048
     Dates: start: 20080909, end: 20090324
  16. REMICADE [Suspect]
     Route: 042
     Dates: start: 20090909
  17. REMICADE [Suspect]
     Route: 042
     Dates: start: 20100303
  18. REMICADE [Suspect]
     Route: 042
     Dates: start: 20090311
  19. REMICADE [Suspect]
     Indication: BEHCET'S SYNDROME
     Route: 042
     Dates: start: 20090708
  20. PREDNISOLONE [Concomitant]
     Indication: BEHCET'S SYNDROME
     Route: 048
     Dates: start: 20091029, end: 20100114
  21. PREDNISOLONE [Concomitant]
     Route: 048
     Dates: start: 20090325

REACTIONS (2)
  - CONGESTIVE CARDIOMYOPATHY [None]
  - BEHCET'S SYNDROME [None]
